FAERS Safety Report 19098256 (Version 1)
Quarter: 2021Q2

REPORT INFORMATION
  Report Type: Other
  Country: GB (occurrence: GB)
  Receive Date: 20210406
  Receipt Date: 20210406
  Transmission Date: 20210717
  Serious: Yes (Other)
  Sender: FDA-Public Use
  Company Number: GB-ROCHE-2800445

PATIENT
  Sex: Female

DRUGS (8)
  1. OMEPRAZOLE. [Concomitant]
     Active Substance: OMEPRAZOLE
  2. ROACTEMRA [Suspect]
     Active Substance: TOCILIZUMAB
     Indication: RHEUMATOID ARTHRITIS
     Dosage: PRE?FILLED PEN
     Route: 058
     Dates: start: 202101
  3. METHOTREXATE. [Concomitant]
     Active Substance: METHOTREXATE
  4. SIMVASTATIN. [Concomitant]
     Active Substance: SIMVASTATIN
  5. INSULIN [Concomitant]
     Active Substance: INSULIN NOS
  6. ADCAL (UNITED KINGDOM) [Concomitant]
     Active Substance: CALCIUM CARBONATE
  7. FOLIC ACID. [Concomitant]
     Active Substance: FOLIC ACID
  8. FENTANYL TRANSDERMAL SYSTEM [Concomitant]
     Active Substance: FENTANYL

REACTIONS (6)
  - Abdominal pain upper [Unknown]
  - Dermatitis [Unknown]
  - Hiatus hernia [Unknown]
  - Abdominal discomfort [Unknown]
  - Contusion [Unknown]
  - Muscular weakness [Unknown]
